FAERS Safety Report 4281098-0 (Version None)
Quarter: 2004Q1

REPORT INFORMATION
  Report Type: 
  Country: None (occurrence: None)
  Receive Date: 20040127
  Receipt Date: 20031217
  Transmission Date: 20041129
  Serious: Yes (Other)
  Sender: FDA-Public Use
  Company Number: 2003-BP-10585NB

PATIENT
  Sex: Female

DRUGS (1)
  1. MICARDIS [Suspect]
     Dosage: 40 MG PO
     Route: 048

REACTIONS (2)
  - GAMMA-GLUTAMYLTRANSFERASE INCREASED [None]
  - PANCREATIC CARCINOMA [None]
